FAERS Safety Report 8848961 (Version 2)
Quarter: 2013Q1

REPORT INFORMATION
  Report Type: Spontaneous
  Country: JP (occurrence: JP)
  Receive Date: 20121019
  Receipt Date: 20130129
  Transmission Date: 20140127
  Serious: Yes (Death)
  Sender: FDA-Public Use
  Company Number: JP-ELI_LILLY_AND_COMPANY-JP201209007649

PATIENT
  Age: 40 Year
  Sex: Female

DRUGS (5)
  1. ZYPREXA [Suspect]
     Indication: SCHIZOPHRENIA
     Dosage: 2.5 MG, QD
     Route: 048
     Dates: start: 20120512, end: 20120622
  2. ZYPREXA [Suspect]
     Dosage: 2.5 MG, PRN
     Route: 048
     Dates: start: 20120623, end: 20120727
  3. ZYPREXA [Suspect]
     Indication: SCHIZOPHRENIA
     Dosage: UNK
     Route: 048
     Dates: start: 2006
  4. ZYPREXA [Suspect]
     Dosage: UNK
     Route: 048
     Dates: end: 201204
  5. ZYPREXA [Suspect]
     Dosage: UNK
     Route: 048
     Dates: start: 201204, end: 20120511

REACTIONS (5)
  - Cardio-respiratory arrest [Fatal]
  - Completed suicide [Fatal]
  - Inappropriate schedule of drug administration [Recovered/Resolved]
  - Intentional overdose [Unknown]
  - Somnolence [Unknown]
